FAERS Safety Report 16113545 (Version 3)
Quarter: 2020Q3

REPORT INFORMATION
  Report Type: Spontaneous
  Country: US (occurrence: US)
  Receive Date: 20190325
  Receipt Date: 20200909
  Transmission Date: 20201102
  Serious: Yes (Death, Hospitalization)
  Sender: FDA-Public Use
  Company Number: US-LEXICON PHARMACEUTICALS, INC-19-1606-00316

PATIENT
  Age: 67 Year
  Sex: Male

DRUGS (2)
  1. AFINITOR [Suspect]
     Active Substance: EVEROLIMUS
     Indication: CARCINOID TUMOUR OF THE SMALL BOWEL
     Route: 048
  2. TELOTRISTAT ETHYL [Suspect]
     Active Substance: TELOTRISTAT ETHYL
     Indication: CARCINOID TUMOUR OF THE SMALL BOWEL
     Route: 048
     Dates: start: 20170503

REACTIONS (9)
  - Malignant neoplasm progression [Fatal]
  - Muscle spasms [Unknown]
  - Hospitalisation [Unknown]
  - Abdominal pain [Unknown]
  - Peripheral swelling [Unknown]
  - Mouth ulceration [Unknown]
  - Dyspnoea [Unknown]
  - Small intestine carcinoma recurrent [Unknown]
  - Carcinoid tumour of the small bowel [Fatal]

NARRATIVE: CASE EVENT DATE: 2019
